FAERS Safety Report 4796732-6 (Version None)
Quarter: 2005Q4

REPORT INFORMATION
  Report Type: 
  Country: None (occurrence: None)
  Receive Date: 20051007
  Receipt Date: 20050921
  Transmission Date: 20060501
  Serious: Yes (Hospitalization)
  Sender: FDA-Public Use
  Company Number: 2005-CZ-00206

PATIENT
  Age: 1 Year
  Sex: Female

DRUGS (5)
  1. QUININE SULFATE [Suspect]
     Indication: PLASMODIUM FALCIPARUM INFECTION
     Dosage: 10 MG/KG X3 FOR 4 DAYS, 6.7 MG/KG X3 DAY, INTRAVENOUS
     Route: 042
  2. PHENYTOIN [Suspect]
     Indication: EPILEPSY
  3. VALPROATE SODIUM [Concomitant]
  4. TOPIRAMATE [Concomitant]
  5. SULFADOXINE [Concomitant]

REACTIONS (6)
  - CONVULSION [None]
  - DEPRESSED LEVEL OF CONSCIOUSNESS [None]
  - DRUG INEFFECTIVE [None]
  - DRUG INTERACTION [None]
  - IRRITABILITY [None]
  - PLASMODIUM FALCIPARUM INFECTION [None]
